FAERS Safety Report 13361442 (Version 2)
Quarter: 2017Q2

REPORT INFORMATION
  Report Type: Report from Study
  Country: US (occurrence: US)
  Receive Date: 20170323
  Receipt Date: 20170503
  Transmission Date: 20170830
  Serious: No
  Sender: FDA-Public Use
  Company Number: PHEH2017US008478

PATIENT
  Age: 61 Year
  Sex: Female

DRUGS (1)
  1. COSENTYX [Suspect]
     Active Substance: SECUKINUMAB
     Indication: PRODUCT USED FOR UNKNOWN INDICATION
     Dosage: 300 MG, QMO
     Route: 030
     Dates: start: 20161017

REACTIONS (3)
  - Incorrect route of drug administration [Unknown]
  - Inappropriate schedule of drug administration [Unknown]
  - Rash [Unknown]

NARRATIVE: CASE EVENT DATE: 20170320
